FAERS Safety Report 8295552-8 (Version None)
Quarter: 2012Q2

REPORT INFORMATION
  Report Type: 
  Country: None (occurrence: None)
  Receive Date: 20120418
  Receipt Date: 20120409
  Transmission Date: 20120825
  Serious: Yes (Other)
  Sender: FDA-Public Use
  Company Number: US-ASTRAZENECA-2012SE23726

PATIENT
  Sex: Female

DRUGS (2)
  1. SEROQUEL [Suspect]
     Indication: AFFECTIVE DISORDER
     Route: 048
  2. NEXIUM [Suspect]
     Route: 048

REACTIONS (3)
  - CEREBROVASCULAR ACCIDENT [None]
  - INTENTIONAL DRUG MISUSE [None]
  - ADVERSE EVENT [None]
